FAERS Safety Report 22368032 (Version 1)
Quarter: 2023Q2

REPORT INFORMATION
  Report Type: Spontaneous
  Country: US (occurrence: US)
  Receive Date: 20230525
  Receipt Date: 20230525
  Transmission Date: 20230722
  Serious: Yes (Death, Other)
  Sender: FDA-Public Use
  Company Number: US-GILEAD-2023-0628723

PATIENT
  Age: 73 Year
  Sex: Male
  Weight: 70.2 kg

DRUGS (1)
  1. YESCARTA [Suspect]
     Active Substance: AXICABTAGENE CILOLEUCEL
     Indication: Diffuse large B-cell lymphoma
     Dosage: UNK
     Route: 042
     Dates: start: 20230301, end: 20230301

REACTIONS (13)
  - Death [Fatal]
  - Cytokine release syndrome [Unknown]
  - Acute kidney injury [Unknown]
  - Immune effector cell-associated neurotoxicity syndrome [Unknown]
  - Hypoxia [Unknown]
  - Hypoalbuminaemia [Unknown]
  - Fatigue [Unknown]
  - Diarrhoea [Unknown]
  - Incontinence [Unknown]
  - Nausea [Unknown]
  - Hypotension [Unknown]
  - Tachycardia [Unknown]
  - Hypervolaemia [Unknown]

NARRATIVE: CASE EVENT DATE: 20230302
